FAERS Safety Report 6628361-3 (Version None)
Quarter: 2010Q1

REPORT INFORMATION
  Report Type: 
  Country: None (occurrence: None)
  Receive Date: 20100311
  Receipt Date: 20100301
  Transmission Date: 20100710
  Serious: Yes (Other)
  Sender: FDA-Public Use
  Company Number: US-ROCHE-689371

PATIENT

DRUGS (3)
  1. BEVACIZUMAB [Suspect]
     Dosage: CYCLE: 28 DAYS, FREQUENCY: OVER 30-90 MINS ON DAYS 1 AND 15, LAST ADMINISTRATION DATE: 28 AUG 2009
     Route: 042
     Dates: start: 20090219
  2. SORAFENIB [Suspect]
     Dosage: FREQUENCY: GIVEN ON DAYS 1-5, 8-12, 15-19 AND 22-26, LAST ADMINISTRATION DATE: 08 SEPT 2009
     Route: 048
     Dates: start: 20090219
  3. ZOMETA [Suspect]
     Indication: DRUG USE FOR UNKNOWN INDICATION
     Route: 065

REACTIONS (1)
  - BLOOD CREATININE INCREASED [None]
